FAERS Safety Report 9340776 (Version 1)
Quarter: 2013Q2

REPORT INFORMATION
  Report Type: Spontaneous
  Country: DE (occurrence: None)
  Receive Date: 20130605
  Receipt Date: 20130605
  Transmission Date: 20140414
  Serious: Yes (Other)
  Sender: FDA-Public Use
  Company Number: 1305-720

PATIENT
  Age: 84 Year
  Sex: Male

DRUGS (1)
  1. EYLEA [Suspect]
     Indication: AGE-RELATED MACULAR DEGENERATION
     Route: 031
     Dates: start: 20130516

REACTIONS (3)
  - Intraocular pressure increased [None]
  - Haemorrhage [None]
  - Visual acuity reduced [None]
